FAERS Safety Report 23490720 (Version 1)
Quarter: 2024Q1

REPORT INFORMATION
  Report Type: Spontaneous
  Country: US (occurrence: None)
  Receive Date: 20240206
  Receipt Date: 20240206
  Transmission Date: 20240410
  Serious: No
  Sender: FDA-Public Use
  Company Number: US-ROCHE-3435267

PATIENT
  Sex: Male

DRUGS (15)
  1. NUTROPIN AQ [Suspect]
     Active Substance: SOMATROPIN
     Indication: Muscle disorder
     Route: 058
     Dates: start: 201011
  2. NUTROPIN AQ [Suspect]
     Active Substance: SOMATROPIN
  3. ATORVASTATIN [Concomitant]
     Active Substance: ATORVASTATIN
  4. NASONEX [Concomitant]
     Active Substance: MOMETASONE FUROATE
  5. SYNTHROID [Concomitant]
     Active Substance: LEVOTHYROXINE SODIUM
  6. LEVOFLOXACIN [Concomitant]
     Active Substance: LEVOFLOXACIN
  7. BACLOFEN [Concomitant]
     Active Substance: BACLOFEN
  8. HYDROCORTISONE [Concomitant]
     Active Substance: HYDROCORTISONE
  9. SULFAMETHOXAZOLE\TRIMETHOPRIM [Concomitant]
     Active Substance: SULFAMETHOXAZOLE\TRIMETHOPRIM
  10. METFORMIN HYDROCHLORIDE [Concomitant]
     Active Substance: METFORMIN HYDROCHLORIDE
  11. NEXIUM [Concomitant]
     Active Substance: ESOMEPRAZOLE MAGNESIUM
  12. CELEBREX [Concomitant]
     Active Substance: CELECOXIB
  13. ANDRODERM [Concomitant]
     Active Substance: TESTOSTERONE
  14. COUMADIN [Concomitant]
     Active Substance: WARFARIN SODIUM
  15. FENOFIBRATE [Concomitant]
     Active Substance: FENOFIBRATE

REACTIONS (2)
  - Off label use [Unknown]
  - No adverse event [Unknown]
